FAERS Safety Report 4652313-6 (Version None)
Quarter: 2005Q2

REPORT INFORMATION
  Report Type: 
  Country: None (occurrence: None)
  Receive Date: 20050502
  Receipt Date: 20050419
  Transmission Date: 20051028
  Serious: Yes (Death)
  Sender: FDA-Public Use
  Company Number: 05H-163-0297909-00

PATIENT
  Age: 23 Year
  Sex: Female
  Weight: 100 kg

DRUGS (2)
  1. MORPHINE SULFATE INJ [Suspect]
     Indication: POST PROCEDURAL PAIN
     Dosage: SEE IMAGE
     Route: 042
     Dates: start: 20050101, end: 20050101
  2. MORPHINE SULFATE INJ [Suspect]
     Indication: POST PROCEDURAL PAIN
     Dosage: SEE IMAGE
     Route: 042
     Dates: start: 20050101, end: 20050101

REACTIONS (1)
  - ASPIRATION [None]
